FAERS Safety Report 15255167 (Version 5)
Quarter: 2018Q4

REPORT INFORMATION
  Report Type: Report from Study
  Country: CA (occurrence: CA)
  Receive Date: 20180808
  Receipt Date: 20181005
  Transmission Date: 20190204
  Serious: Yes (Death, Other)
  Sender: FDA-Public Use
  Company Number: CA-BRISTOL-MYERS SQUIBB COMPANY-BMS-2018-054745

PATIENT
  Age: 60 Year
  Sex: Female
  Weight: 89 kg

DRUGS (3)
  1. NIVOLUMAB [Suspect]
     Active Substance: NIVOLUMAB
     Indication: RENAL CELL CARCINOMA
     Dosage: 240 MG, Q2WK
     Route: 042
     Dates: start: 20180530, end: 20180808
  2. YERVOY [Suspect]
     Active Substance: IPILIMUMAB
     Indication: RENAL CELL CARCINOMA
     Dosage: 80 MG, Q2WK
     Route: 042
     Dates: start: 20180530, end: 20180808
  3. LASIX [Concomitant]
     Active Substance: FUROSEMIDE
     Indication: PRODUCT USED FOR UNKNOWN INDICATION
     Route: 065

REACTIONS (15)
  - Vomiting [Unknown]
  - Dry skin [Unknown]
  - Erythema [Unknown]
  - Blood pressure decreased [Unknown]
  - Oedema peripheral [Unknown]
  - Metastatic renal cell carcinoma [Fatal]
  - Fatigue [Unknown]
  - Joint swelling [Unknown]
  - Cellulitis [Unknown]
  - Nausea [Unknown]
  - Skin warm [Unknown]
  - Pruritus [Unknown]
  - Cough [Unknown]
  - Weight increased [Unknown]
  - Insomnia [Unknown]

NARRATIVE: CASE EVENT DATE: 20180620
